FAERS Safety Report 9063681 (Version 6)
Quarter: 2019Q2

REPORT INFORMATION
  Report Type: Spontaneous
  Country: US (occurrence: US)
  Receive Date: 20130213
  Receipt Date: 20190613
  Transmission Date: 20190711
  Serious: Yes (Hospitalization, Other)
  Sender: FDA-Public Use
  Company Number: US-PFIZER INC-2013053874

PATIENT
  Age: 70 Year
  Sex: Female
  Weight: 92.97 kg

DRUGS (7)
  1. INDERAL LA [Suspect]
     Active Substance: PROPRANOLOL HYDROCHLORIDE
     Indication: CARDIAC DISORDER
     Dosage: 80 MG, UNK
  2. INDERAL LA [Suspect]
     Active Substance: PROPRANOLOL HYDROCHLORIDE
     Indication: BLOOD PRESSURE ABNORMAL
     Dosage: 80 MG, 1X/DAY (80MG, CAPSULES, BY MOUTH, ONCE A DAY)
     Route: 048
     Dates: start: 1978
  3. PROPANOLOL HCL [Suspect]
     Active Substance: PROPRANOLOL HYDROCHLORIDE
     Indication: BLOOD PRESSURE ABNORMAL
     Dosage: 80 MG, 1X/DAY
     Route: 048
  4. INDERAL LA [Suspect]
     Active Substance: PROPRANOLOL HYDROCHLORIDE
     Dosage: 80 MG, UNK
  5. INDERAL LA [Suspect]
     Active Substance: PROPRANOLOL HYDROCHLORIDE
     Indication: HEART RATE IRREGULAR
     Dosage: 80 MG, 1X/DAY
     Route: 048
     Dates: start: 201301
  6. PEPCID [Concomitant]
     Active Substance: FAMOTIDINE
     Indication: PROPHYLAXIS AGAINST GASTROINTESTINAL ULCER
     Dosage: 20 MG, UNK
  7. PROPANOLOL HCL [Suspect]
     Active Substance: PROPRANOLOL HYDROCHLORIDE
     Indication: HEART RATE IRREGULAR
     Dosage: 80 MG, 1X/DAY
     Dates: start: 2016

REACTIONS (28)
  - Blood pressure increased [Unknown]
  - Tinnitus [Not Recovered/Not Resolved]
  - Palpitations [Unknown]
  - Endocrine disorder [Unknown]
  - Blood pressure increased [Not Recovered/Not Resolved]
  - Dysstasia [Not Recovered/Not Resolved]
  - Somnolence [Unknown]
  - Hallucination, auditory [Unknown]
  - Tinnitus [Unknown]
  - Flushing [Unknown]
  - Hyperhidrosis [Unknown]
  - Ill-defined disorder [Unknown]
  - Fatigue [Not Recovered/Not Resolved]
  - Condition aggravated [Not Recovered/Not Resolved]
  - Hypoacusis [Not Recovered/Not Resolved]
  - Tremor [Not Recovered/Not Resolved]
  - Product physical issue [Unknown]
  - Poor quality sleep [Unknown]
  - Tremor [Unknown]
  - Speech disorder [Unknown]
  - Feeling jittery [Unknown]
  - Abnormal behaviour [Not Recovered/Not Resolved]
  - Asthenia [Not Recovered/Not Resolved]
  - Feeling abnormal [Unknown]
  - Heart rate irregular [Unknown]
  - Hypoacusis [Unknown]
  - Weight increased [Unknown]
  - Headache [Unknown]

NARRATIVE: CASE EVENT DATE: 201212
